FAERS Safety Report 5713912-3 (Version None)
Quarter: 2008Q2

REPORT INFORMATION
  Report Type: 
  Country: None (occurrence: None)
  Receive Date: 20080422
  Receipt Date: 20080422
  Transmission Date: 20081010
  Serious: No
  Sender: FDA-Public Use
  Company Number: None

PATIENT
  Age: 55 Year
  Sex: Female
  Weight: 61.2356 kg

DRUGS (1)
  1. TRILAFON [Suspect]
     Indication: ANXIETY
     Dates: start: 19940101, end: 19950101

REACTIONS (3)
  - ADVERSE REACTION [None]
  - LOSS OF EMPLOYMENT [None]
  - TARDIVE DYSKINESIA [None]
